FAERS Safety Report 7292410-2 (Version None)
Quarter: 2011Q1

REPORT INFORMATION
  Report Type: 
  Country: None (occurrence: None)
  Receive Date: 20110215
  Receipt Date: 20110208
  Transmission Date: 20110831
  Serious: Yes (Other)
  Sender: FDA-Public Use
  Company Number: BR-PFIZER INC-2011027862

PATIENT
  Age: 66 Year
  Sex: Female
  Weight: 73 kg

DRUGS (2)
  1. XALATAN [Suspect]
     Indication: GLAUCOMA
     Dosage: [LATANOPROST 3.0 UG]/[TIMOLOL MALEATE 300 UG], (1 DROP EACH EYE, 1X/DAY)
     Route: 047
  2. XALATAN [Suspect]
     Route: 047

REACTIONS (1)
  - INTRAOCULAR PRESSURE INCREASED [None]
